FAERS Safety Report 4717335-5 (Version None)
Quarter: 2005Q3

REPORT INFORMATION
  Report Type: 
  Country: None (occurrence: None)
  Receive Date: 20050715
  Receipt Date: 20050629
  Transmission Date: 20060218
  Serious: Yes (Other)
  Sender: FDA-Public Use
  Company Number: CTI_0814_2005

PATIENT
  Age: 54 Year
  Sex: Male
  Weight: 112.3 kg

DRUGS (10)
  1. ZILEUTON [Suspect]
     Indication: NON-SMALL CELL LUNG CANCER
     Dosage: 600 MG QID PO
     Route: 048
     Dates: start: 20040913, end: 20040924
  2. ZILEUTON [Suspect]
     Indication: NON-SMALL CELL LUNG CANCER
     Dosage: 600 MG TID PO
     Route: 048
     Dates: start: 20040924
  3. CARBOPLATIN [Suspect]
     Indication: NON-SMALL CELL LUNG CANCER
     Dosage: 810 MG QDAY IV
     Route: 042
     Dates: start: 20040910, end: 20040910
  4. CELECOXIB [Suspect]
     Indication: NON-SMALL CELL LUNG CANCER
     Dosage: 400 MG BID PO
     Route: 048
     Dates: start: 20040913, end: 20040924
  5. GEMCITABINE [Suspect]
     Indication: NON-SMALL CELL LUNG CANCER
     Dosage: 100 MG/M2 QWK IV
     Route: 042
     Dates: start: 20040910, end: 20040917
  6. DIAZEPAM [Concomitant]
  7. DOCUSATE NA [Concomitant]
  8. MILK OF MAGNESIA [Concomitant]
  9. PROCHLORPERAZINE MALEATE [Concomitant]
  10. SENNOSIDES [Concomitant]

REACTIONS (5)
  - ALANINE AMINOTRANSFERASE INCREASED [None]
  - ASPARTATE AMINOTRANSFERASE INCREASED [None]
  - BLOOD ALKALINE PHOSPHATASE INCREASED [None]
  - PLATELET COUNT DECREASED [None]
  - WHITE BLOOD CELL COUNT DECREASED [None]
